FAERS Safety Report 8572034-7 (Version None)
Quarter: 2012Q3

REPORT INFORMATION
  Report Type: 
  Country: None (occurrence: None)
  Receive Date: 20120806
  Receipt Date: 20120729
  Transmission Date: 20120928
  Serious: Yes (Death)
  Sender: FDA-Public Use
  Company Number: PHEH2012US008577

PATIENT
  Sex: Female
  Weight: 88.435 kg

DRUGS (3)
  1. PROZAC [Concomitant]
     Indication: DEPRESSION
     Dosage: 20 UKN, DAILY
     Dates: start: 20110801
  2. GILENYA [Suspect]
     Indication: RELAPSING-REMITTING MULTIPLE SCLEROSIS
     Dosage: 0.5 MG, QD
     Route: 048
     Dates: start: 20110801
  3. KLONOPIN [Concomitant]
     Dosage: UNK UKN, UNK

REACTIONS (5)
  - ARRHYTHMIA [None]
  - BACK PAIN [None]
  - PAIN IN EXTREMITY [None]
  - ATAXIA [None]
  - CENTRAL NERVOUS SYSTEM LESION [None]
